FAERS Safety Report 5996512-X (Version None)
Quarter: 2008Q4

REPORT INFORMATION
  Report Type: 
  Country: None (occurrence: None)
  Receive Date: 20081212
  Receipt Date: 20080623
  Transmission Date: 20090506
  Serious: No
  Sender: FDA-Public Use
  Company Number: US-AMGEN-KDL286753

PATIENT
  Sex: Female

DRUGS (2)
  1. ENBREL [Suspect]
     Indication: PSORIASIS
     Dates: start: 20040601
  2. UNSPECIFIED TOPICAL PRODUCT [Concomitant]

REACTIONS (3)
  - LETHARGY [None]
  - PSORIASIS [None]
  - TUBERCULIN TEST POSITIVE [None]
